FAERS Safety Report 16308673 (Version 1)
Quarter: 2019Q2

REPORT INFORMATION
  Report Type: Spontaneous
  Country: US (occurrence: US)
  Receive Date: 20190514
  Receipt Date: 20190514
  Transmission Date: 20190711
  Serious: Yes (Other)
  Sender: FDA-Public Use
  Company Number: US-GLENMARK PHARMACEUTICALS-2019GMK040932

PATIENT

DRUGS (4)
  1. OMEPRAZOLE. [Suspect]
     Active Substance: OMEPRAZOLE
     Indication: GASTROENTERITIS VIRAL
     Dosage: 40 MG, AM (ONE CAPSULE IN THE MORNING WITH APPLE SAUCE)
     Route: 048
     Dates: start: 20190416
  2. LEVOFLOXACIN. [Concomitant]
     Active Substance: LEVOFLOXACIN
     Indication: GASTROENTERITIS VIRAL
     Dosage: 200 MG, AM
     Route: 065
  3. ALINIA [Concomitant]
     Active Substance: NITAZOXANIDE
     Indication: GASTROENTERITIS VIRAL
     Dosage: 500 MG, BID (1 TABLET EVERY 12 HOURS WITH MEALS)
     Route: 065
  4. DOXYCYCLINE MONOHYDRATE [Concomitant]
     Active Substance: DOXYCYCLINE
     Indication: GASTROENTERITIS VIRAL
     Dosage: 100 MG, OD (1 CAPSULE ONCE A DAY WITH FOOD)
     Route: 065

REACTIONS (4)
  - Dysphagia [Recovered/Resolved]
  - Rhinorrhoea [Recovered/Resolved]
  - Product use in unapproved indication [Unknown]
  - Dry throat [Recovered/Resolved]

NARRATIVE: CASE EVENT DATE: 20190417
